FAERS Safety Report 10663422 (Version 2)
Quarter: 2015Q1

REPORT INFORMATION
  Report Type: Spontaneous
  Country: JP (occurrence: JP)
  Receive Date: 20141218
  Receipt Date: 20150103
  Transmission Date: 20150720
  Serious: Yes (Hospitalization)
  Sender: FDA-Public Use
  Company Number: JP-TAKEDA-2014TJP016931

PATIENT
  Age: 34 Year
  Sex: Female

DRUGS (8)
  1. ACTOS [Suspect]
     Active Substance: PIOGLITAZONE HYDROCHLORIDE
     Indication: DIABETES MELLITUS
     Dosage: UNK
     Route: 048
  2. INSULIN HUMAN [Concomitant]
     Active Substance: INSULIN HUMAN
     Dosage: 50 IU, UNK
     Route: 050
  3. METFORMIN HYDROCHLORIDE. [Concomitant]
     Active Substance: METFORMIN HYDROCHLORIDE
     Indication: DIABETES MELLITUS
     Dosage: UNK
     Route: 048
  4. INSULIN HUMAN [Concomitant]
     Active Substance: INSULIN HUMAN
     Dosage: 40 IU, UNK
     Route: 050
  5. INSULIN HUMAN [Concomitant]
     Active Substance: INSULIN HUMAN
     Dosage: 70 IU, UNK
     Route: 050
  6. METFORMIN HYDROCHLORIDE. [Concomitant]
     Active Substance: METFORMIN HYDROCHLORIDE
     Dosage: 2250 MG, UNK
     Route: 048
  7. INSULIN HUMAN [Concomitant]
     Active Substance: INSULIN HUMAN
     Dosage: 260 IU, UNK
     Route: 050
  8. INSULIN HUMAN [Concomitant]
     Active Substance: INSULIN HUMAN
     Indication: DIABETES MELLITUS
     Dosage: 84 IU, UNK
     Route: 050

REACTIONS (4)
  - Threatened labour [Recovered/Resolved]
  - Pregnancy [Recovered/Resolved]
  - Uterine contractions abnormal [Recovered/Resolved]
  - Breech presentation [Recovered/Resolved]
